FAERS Safety Report 18337112 (Version 3)
Quarter: 2020Q4

REPORT INFORMATION
  Report Type: Spontaneous
  Country: CA (occurrence: CA)
  Receive Date: 20201002
  Receipt Date: 20201210
  Transmission Date: 20210113
  Serious: Yes (Hospitalization)
  Sender: FDA-Public Use
  Company Number: CA-CELLTRION INC.-2019CA023859

PATIENT

DRUGS (13)
  1. INFLECTRA [Suspect]
     Active Substance: INFLIXIMAB-DYYB
     Dosage: 5 MG/KG (400MG) 0, 2, 6 WEEKS, THEN EVERY 8 WEEKS
     Route: 042
     Dates: start: 20200720
  2. ACETAMINOPHEN. [Concomitant]
     Active Substance: ACETAMINOPHEN
     Indication: PREMEDICATION
     Dosage: 650 MG
     Route: 048
     Dates: start: 20201126, end: 20201126
  3. INFLECTRA [Suspect]
     Active Substance: INFLIXIMAB-DYYB
     Indication: CROHN^S DISEASE
     Dosage: 5 MG/KG (340MG) 0, 2, 6 WEEKS, THEN EVERY 8 WEEKS (DOSE ROUND UP)
     Route: 042
     Dates: start: 20190724
  4. HYDROCORTISONE. [Concomitant]
     Active Substance: HYDROCORTISONE
     Indication: PREMEDICATION
     Dosage: 100 MG
     Route: 042
     Dates: start: 20201126, end: 20201126
  5. INFLECTRA [Suspect]
     Active Substance: INFLIXIMAB-DYYB
     Dosage: 5 MG/KG (340MG)0, 2, 6 WEEKS, THEN EVERY 8 WEEKS (DOSE ROUND UP)
     Route: 042
     Dates: start: 20200427
  6. INFLECTRA [Suspect]
     Active Substance: INFLIXIMAB-DYYB
     Dosage: 5 MG/KG (340MG)0, 2, 6 WEEKS, THEN EVERY 8 WEEKS (DOSE ROUND UP)
     Route: 042
     Dates: start: 20190807
  7. INFLECTRA [Suspect]
     Active Substance: INFLIXIMAB-DYYB
     Dosage: 5 MG/KG (340MG) 0, 2, 6 WEEKS, THEN EVERY 8 WEEKS (DOSE ROUND UP)
     Route: 042
     Dates: start: 20191029
  8. INFLECTRA [Suspect]
     Active Substance: INFLIXIMAB-DYYB
     Dosage: 5 MG/KG (340MG)0, 2, 6 WEEKS, THEN EVERY 8 WEEKS (DOSE ROUND UP)
     Route: 042
     Dates: start: 20200303
  9. INFLECTRA [Suspect]
     Active Substance: INFLIXIMAB-DYYB
     Dosage: 600 MG EVERY 6 WEEKS
     Route: 042
     Dates: start: 20200903
  10. INFLECTRA [Suspect]
     Active Substance: INFLIXIMAB-DYYB
     Dosage: 5 MG/KG (340MG) 0, 2, 6 WEEKS, THEN EVERY 8 WEEKS (DOSE ROUND UP)
     Route: 042
     Dates: start: 20190904
  11. INFLECTRA [Suspect]
     Active Substance: INFLIXIMAB-DYYB
     Dosage: 5 MG/KG (340MG)0, 2, 6 WEEKS, THEN EVERY 8 WEEKS (DOSE ROUND UP)
     Route: 042
     Dates: start: 20200303
  12. INFLECTRA [Suspect]
     Active Substance: INFLIXIMAB-DYYB
     Dosage: 600 MG EVERY 6 WEEKS
     Route: 042
     Dates: start: 20201126
  13. INFLECTRA [Suspect]
     Active Substance: INFLIXIMAB-DYYB
     Dosage: 5 MG/KG (340MG)0, 2, 6 WEEKS, THEN EVERY 8 WEEKS (DOSE ROUND UP)
     Route: 042
     Dates: start: 20200106

REACTIONS (12)
  - Kidney infection [Unknown]
  - Incorrect dose administered [Unknown]
  - Diarrhoea [Recovered/Resolved]
  - Intentional product use issue [Unknown]
  - Inappropriate schedule of product administration [Unknown]
  - Off label use [Unknown]
  - Off label use [Unknown]
  - Condition aggravated [Not Recovered/Not Resolved]
  - Heart rate increased [Recovered/Resolved]
  - Drug level below therapeutic [Unknown]
  - Blood pressure fluctuation [Unknown]
  - Infection [Unknown]

NARRATIVE: CASE EVENT DATE: 201907
